FAERS Safety Report 4382168-9 (Version None)
Quarter: 2004Q2

REPORT INFORMATION
  Report Type: 
  Country: None (occurrence: None)
  Receive Date: 20040618
  Receipt Date: 20040618
  Transmission Date: 20050107
  Serious: Yes (Other)
  Sender: FDA-Public Use
  Company Number: None

PATIENT
  Age: 37 Year
  Sex: Male
  Weight: 27.5 kg

DRUGS (6)
  1. OMEPRAZOLE [Suspect]
  2. OMEPRAZOLE [Concomitant]
  3. ACETAMINOPHEN [Concomitant]
  4. AMITRIPTYLINE HCL [Concomitant]
  5. CYCLOBENZAPRINE HCL [Concomitant]
  6. LEVOCABASTINE [Concomitant]

REACTIONS (2)
  - GASTROINTESTINAL DISORDER [None]
  - SOMNOLENCE [None]
